FAERS Safety Report 17455663 (Version 1)
Quarter: 2020Q1

REPORT INFORMATION
  Report Type: Spontaneous
  Country: US (occurrence: US)
  Receive Date: 20200212
  Receipt Date: 20200212
  Transmission Date: 20200409
  Serious: No
  Sender: FDA-Public Use
  Company Number: None

PATIENT
  Age: 57 Year
  Sex: Female
  Weight: 102.97 kg

DRUGS (4)
  1. RANITIDINE. [Suspect]
     Active Substance: RANITIDINE
  2. METFORMIN [Suspect]
     Active Substance: METFORMIN HYDROCHLORIDE
  3. AMLODIPINE [Suspect]
     Active Substance: AMLODIPINE BESYLATE
  4. ZYPREXA [Suspect]
     Active Substance: OLANZAPINE

REACTIONS (6)
  - Malaise [None]
  - Hypertension [None]
  - Peripheral swelling [None]
  - Blood glucose increased [None]
  - Diarrhoea [None]
  - Neoplasm malignant [None]

NARRATIVE: CASE EVENT DATE: 20190909
